FAERS Safety Report 4313731-9 (Version None)
Quarter: 2004Q1

REPORT INFORMATION
  Report Type: 
  Country: None (occurrence: None)
  Receive Date: 20040305
  Receipt Date: 20040225
  Transmission Date: 20041129
  Serious: Yes (Death, Hospitalization)
  Sender: FDA-Public Use
  Company Number: 163-20785-04010600

PATIENT
  Age: 52 Year
  Sex: Female

DRUGS (12)
  1. THALOMID [Suspect]
     Indication: SARCOMA
     Dosage: 300 MG, DAILY, ORAL
     Route: 048
     Dates: start: 20031009, end: 20040117
  2. DILANTIN [Concomitant]
  3. CL (POTASSIUM CHLORIDE) [Concomitant]
  4. LACTULOSE [Concomitant]
  5. SENNA (SENNA) (TABLETS) [Concomitant]
  6. LOVENOX [Concomitant]
  7. LEVOTHROID [Concomitant]
  8. ALBUTEROL [Concomitant]
  9. QVAR (BECLOMETASOME DIPROPIONATE) [Concomitant]
  10. LASIX [Concomitant]
  11. PROCRIT (ERYTHROPOIETIN) [Concomitant]
  12. ATIVAN [Concomitant]

REACTIONS (4)
  - DEEP VEIN THROMBOSIS [None]
  - GASTROINTESTINAL HAEMORRHAGE [None]
  - MALIGNANT NEOPLASM PROGRESSION [None]
  - SARCOMA [None]
